FAERS Safety Report 6322424-8 (Version None)
Quarter: 2009Q3

REPORT INFORMATION
  Report Type: 
  Country: None (occurrence: None)
  Receive Date: 20090824
  Receipt Date: 20090615
  Transmission Date: 20100115
  Serious: No
  Sender: FDA-Public Use
  Company Number: US-ABBOTT-09P-163-0503063-00

PATIENT
  Sex: Male
  Weight: 93.07 kg

DRUGS (9)
  1. NIASPAN [Suspect]
     Indication: HIGH DENSITY LIPOPROTEIN DECREASED
     Route: 048
     Dates: start: 20090206, end: 20090301
  2. NIASPAN [Suspect]
     Indication: LOW DENSITY LIPOPROTEIN INCREASED
     Dates: start: 20090301
  3. ALTACE [Concomitant]
     Indication: RENIN-ANGIOTENSIN SYSTEM INHIBITION
     Route: 048
  4. DECONGESTANT [Concomitant]
     Indication: DRUG USE FOR UNKNOWN INDICATION
     Route: 048
  5. VITAMINS [Concomitant]
     Indication: VITAMIN SUPPLEMENTATION
  6. NASONEX [Concomitant]
     Indication: HYPERSENSITIVITY
  7. MUCINEX [Concomitant]
     Indication: HYPERSENSITIVITY
  8. MUCINEX D [Concomitant]
     Indication: HYPERSENSITIVITY
  9. UNKNOWN ANTIHISTAMINE [Concomitant]
     Indication: HYPERSENSITIVITY

REACTIONS (5)
  - FEELING ABNORMAL [None]
  - GLYCOSYLATED HAEMOGLOBIN INCREASED [None]
  - HIGH DENSITY LIPOPROTEIN DECREASED [None]
  - LOW DENSITY LIPOPROTEIN INCREASED [None]
  - SOMNOLENCE [None]
